FAERS Safety Report 19785696 (Version 1)
Quarter: 2021Q3

REPORT INFORMATION
  Report Type: Spontaneous
  Country: CA (occurrence: CA)
  Receive Date: 20210903
  Receipt Date: 20210903
  Transmission Date: 20211014
  Serious: Yes (Hospitalization, Other)
  Sender: FDA-Public Use
  Company Number: CA-ACCORD-237028

PATIENT
  Age: 54 Year
  Sex: Female

DRUGS (4)
  1. RAMIPRIL. [Concomitant]
     Active Substance: RAMIPRIL
  2. METHOTREXATE. [Suspect]
     Active Substance: METHOTREXATE
     Indication: PRODUCT USED FOR UNKNOWN INDICATION
     Dosage: 1 EVERY 1 WEEKS
  3. XELJANZ [Concomitant]
     Active Substance: TOFACITINIB CITRATE
     Indication: RHEUMATOID ARTHRITIS
     Dosage: 1 EVERY 1 DAYS
     Route: 048
  4. CELECOXIB. [Concomitant]
     Active Substance: CELECOXIB

REACTIONS (6)
  - Fluid retention [Not Recovered/Not Resolved]
  - Mobility decreased [Not Recovered/Not Resolved]
  - Ascites [Not Recovered/Not Resolved]
  - Inflammation [Not Recovered/Not Resolved]
  - Joint instability [Not Recovered/Not Resolved]
  - Pulmonary oedema [Not Recovered/Not Resolved]
